FAERS Safety Report 7921399-5 (Version None)
Quarter: 2011Q4

REPORT INFORMATION
  Report Type: 
  Country: None (occurrence: None)
  Receive Date: 20111117
  Receipt Date: 20111110
  Transmission Date: 20120403
  Serious: No
  Sender: FDA-Public Use
  Company Number: US-BAYER-2011-109404

PATIENT
  Age: 55 Year
  Sex: Male
  Weight: 73.469 kg

DRUGS (14)
  1. HYDROCHLOROTHIAZIDE [Concomitant]
  2. BUPROPION HCL [Concomitant]
  3. PREGABALIN [Concomitant]
  4. TRAZODONE HCL [Concomitant]
  5. DOCUSATE SODIUM [Concomitant]
  6. TROSPIUM CHLORIDE [Concomitant]
  7. BACLOFEN [Concomitant]
  8. HYDROCO/APAP TAB 5-500MG [Concomitant]
  9. ESOMEPRAZOLE [Concomitant]
  10. ALFUZOSIN HCL [Concomitant]
  11. BETASERON [Suspect]
     Dosage: 8 MIU, QOD
     Route: 058
  12. BETASERON [Suspect]
     Dosage: 2 MIU, QOD
     Route: 058
     Dates: start: 20110101
  13. BETASERON [Suspect]
     Dosage: 4 MIU, QOD
     Route: 058
  14. BETASERON [Suspect]
     Dosage: 6 MIU, QOD
     Route: 058

REACTIONS (5)
  - INFLUENZA LIKE ILLNESS [None]
  - ORAL HERPES [None]
  - PAIN IN EXTREMITY [None]
  - MUSCLE SPASMS [None]
  - HYPOAESTHESIA [None]
